FAERS Safety Report 5299555-7 (Version None)
Quarter: 2007Q2

REPORT INFORMATION
  Report Type: 
  Country: None (occurrence: None)
  Receive Date: 20070410
  Receipt Date: 20070402
  Transmission Date: 20071010
  Serious: Yes (Hospitalization)
  Sender: FDA-Public Use
  Company Number: A0645572A

PATIENT
  Age: 52 Year
  Sex: Female

DRUGS (9)
  1. LAMICTAL [Suspect]
     Indication: BIPOLAR DISORDER
     Dosage: SEE DOSAGE TEXT/ORAL
     Route: 048
     Dates: start: 20061101
  2. VENLAFAXIINE HCL [Suspect]
     Indication: DEPRESSION
     Dosage: TWICE PER DAY/ORAL
     Route: 048
     Dates: start: 19970101, end: 20070301
  3. SEMISODIUM VALPROATE [Concomitant]
  4. LEVOTHYROXINE SODIUM [Concomitant]
  5. HYDROCHLOROTHIAZIDE [Concomitant]
  6. PANTOPRAZOLE [Concomitant]
  7. INDOMETHACIN [Concomitant]
  8. BENZONATATE [Concomitant]
  9. QUETIAPINE FUMARATE [Concomitant]

REACTIONS (6)
  - AMNESIA [None]
  - COORDINATION ABNORMAL [None]
  - DRY MOUTH [None]
  - HEADACHE [None]
  - MANIA [None]
  - VISUAL DISTURBANCE [None]
